FAERS Safety Report 10331699 (Version 4)
Quarter: 2014Q3

REPORT INFORMATION
  Report Type: Spontaneous
  Country: IT (occurrence: IT)
  Receive Date: 20140722
  Receipt Date: 20140808
  Transmission Date: 20150326
  Serious: Yes (Death, Hospitalization)
  Sender: FDA-Public Use
  Company Number: IT-VERTEX PHARMACEUTICALS INC-2014-003206

PATIENT
  Age: 63 Year
  Sex: Female

DRUGS (3)
  1. INCIVO [Suspect]
     Active Substance: TELAPREVIR
     Indication: HEPATITIS C
     Dosage: 3CP+3CP
     Route: 048
     Dates: start: 20140221, end: 20140516
  2. PEGASYS [Suspect]
     Active Substance: PEGINTERFERON ALFA-2A
     Indication: HEPATITIS C
     Dosage: DOSAGE FORM: SOLUTION FOR INJECTION
     Route: 058
     Dates: start: 20140221, end: 20140615
  3. REBETOL [Suspect]
     Active Substance: RIBAVIRIN
     Indication: HEPATITIS C
     Dosage: DOSAGE FORM: CAPSULE, HARD, 3CP+3CP
     Route: 048
     Dates: start: 20140221, end: 20140615

REACTIONS (13)
  - Renal disorder [Fatal]
  - Anaemia [Unknown]
  - Urinary tract infection [Unknown]
  - Peritonitis bacterial [Fatal]
  - Respiratory acidosis [Fatal]
  - Hypercapnia [Fatal]
  - Cardio-respiratory arrest [Fatal]
  - Pancytopenia [Unknown]
  - Malaise [Unknown]
  - Pneumonia aspiration [Fatal]
  - Psychomotor hyperactivity [Fatal]
  - Hypoxic-ischaemic encephalopathy [Fatal]
  - Hepatic cirrhosis [Fatal]

NARRATIVE: CASE EVENT DATE: 201404
